FAERS Safety Report 15747915 (Version 1)
Quarter: 2018Q4

REPORT INFORMATION
  Report Type: Spontaneous
  Country: GB (occurrence: GB)
  Receive Date: 20181221
  Receipt Date: 20181221
  Transmission Date: 20190205
  Serious: No
  Sender: FDA-Public Use
  Company Number: GB-IPSEN BIOPHARMACEUTICALS, INC.-2018-05648

PATIENT

DRUGS (3)
  1. BOTULINUM TOXIN TYPE A NOS [Suspect]
     Active Substance: BOTULINUM TOXIN TYPE A
     Indication: OFF LABEL USE
  2. BOTULINUM TOXIN TYPE A NOS [Suspect]
     Active Substance: BOTULINUM TOXIN TYPE A
     Indication: URINARY INCONTINENCE
  3. BOTULINUM TOXIN TYPE A NOS [Suspect]
     Active Substance: BOTULINUM TOXIN TYPE A
     Indication: BLADDER SPASM
     Dosage: 100-200 U
     Route: 065

REACTIONS (2)
  - Off label use [Unknown]
  - Urinary tract infection [Unknown]
